FAERS Safety Report 5556783-0 (Version None)
Quarter: 2007Q4

REPORT INFORMATION
  Report Type: 
  Country: None (occurrence: None)
  Receive Date: 20071130
  Receipt Date: 20070718
  Transmission Date: 20080405
  Serious: No
  Sender: FDA-Public Use
  Company Number: 2007PV028999

PATIENT
  Age: 37 Year
  Sex: Female
  Weight: 90.3 kg

DRUGS (11)
  1. EXENATIDE(EXENATIDE) PEN,DISPOSABLE [Suspect]
     Indication: TYPE 2 DIABETES MELLITUS
     Dosage: 5 UG, 2/D, SUBCUTANEOUS, 10 UG, 2/D, SUBCUTANEOUS
     Route: 058
     Dates: start: 20070201, end: 20070630
  2. EXENATIDE(EXENATIDE) PEN,DISPOSABLE [Suspect]
     Indication: TYPE 2 DIABETES MELLITUS
     Dosage: 5 UG, 2/D, SUBCUTANEOUS, 10 UG, 2/D, SUBCUTANEOUS
     Route: 058
     Dates: start: 20070125
  3. EXENATIDE(EXENATIDE) PEN,DISPOSABLE [Suspect]
     Indication: TYPE 2 DIABETES MELLITUS
     Dosage: 5 UG, 2/D, SUBCUTANEOUS, 10 UG, 2/D, SUBCUTANEOUS
     Route: 058
     Dates: start: 20070701
  4. METFORMIN HCL [Concomitant]
  5. AMARYL [Concomitant]
  6. FISH OIL [Concomitant]
  7. PROZAC [Concomitant]
  8. NORVASC [Concomitant]
  9. RESTASIS (CICLOSPORIN) [Concomitant]
  10. ZYRTEC-D (CETIRIZINE HYDROCHLORIDE PSUEDOEPHEDRINE HYDROCHLORIDE) [Concomitant]
  11. AMBIEN [Concomitant]

REACTIONS (6)
  - ABDOMINAL DISTENSION [None]
  - CONDITION AGGRAVATED [None]
  - DECREASED APPETITE [None]
  - DRY MOUTH [None]
  - INJECTION SITE BRUISING [None]
  - THIRST [None]
